FAERS Safety Report 25083925 (Version 1)
Quarter: 2025Q1

REPORT INFORMATION
  Report Type: Spontaneous
  Country: AT (occurrence: AT)
  Receive Date: 20250317
  Receipt Date: 20250317
  Transmission Date: 20250409
  Serious: Yes (Other)
  Sender: BAYER HEALTHCARE LLC
  Company Number: AT-BAYER-2025A034616

PATIENT
  Age: 64 Year
  Sex: Male

DRUGS (2)
  1. NAPROXEN SODIUM [Suspect]
     Active Substance: NAPROXEN SODIUM
  2. BETAMETHASONE [Concomitant]
     Active Substance: BETAMETHASONE
     Route: 061

REACTIONS (2)
  - Generalised pustular psoriasis [None]
  - Drug hypersensitivity [Recovered/Resolved]
